FAERS Safety Report 11078610 (Version 1)
Quarter: 2015Q2

REPORT INFORMATION
  Report Type: Spontaneous
  Country: US (occurrence: US)
  Receive Date: 20150430
  Receipt Date: 20150430
  Transmission Date: 20150821
  Serious: Yes (Hospitalization, Other)
  Sender: FDA-Public Use
  Company Number: US-GLENMARK GENERICS INC.-2015GMK013569

PATIENT
  Age: 28 Year
  Sex: Female

DRUGS (3)
  1. LITHOBID [Suspect]
     Active Substance: LITHIUM CARBONATE
     Indication: BIPOLAR I DISORDER
     Dosage: UNK
  2. LITHIUM CARBONATE ER TABLETS USP, 300MG [Suspect]
     Active Substance: LITHIUM CARBONATE
     Indication: BIPOLAR I DISORDER
     Dosage: 2 DF, HS
     Route: 048
     Dates: start: 201411, end: 20150122
  3. LORAZEPAM. [Concomitant]
     Active Substance: LORAZEPAM
     Indication: ANXIETY
     Dosage: UNK, PRN (TWO TIMES A WEEK)
     Route: 048
     Dates: start: 201501, end: 201501

REACTIONS (13)
  - Exposure during pregnancy [Recovered/Resolved]
  - Gestational diabetes [Unknown]
  - Hypokinesia [Recovered/Resolved]
  - Caesarean section [None]
  - Headache [Unknown]
  - Eating disorder [Recovered/Resolved]
  - Amniotic fluid volume increased [Unknown]
  - Abdominal pain upper [Recovered/Resolved]
  - Coeliac disease [None]
  - Loss of consciousness [Not Recovered/Not Resolved]
  - Nausea [Unknown]
  - Diarrhoea [Recovered/Resolved]
  - Condition aggravated [None]

NARRATIVE: CASE EVENT DATE: 20150119
